FAERS Safety Report 24790512 (Version 1)
Quarter: 2024Q4

REPORT INFORMATION
  Report Type: Report from Study
  Country: IL (occurrence: IL)
  Receive Date: 20241230
  Receipt Date: 20241230
  Transmission Date: 20250114
  Serious: Yes (Hospitalization, Other)
  Sender: TAKEDA
  Company Number: IL-TAKEDA-2024TUS128333

PATIENT
  Sex: Female

DRUGS (14)
  1. VELAGLUCERASE ALFA [Suspect]
     Active Substance: VELAGLUCERASE ALFA
     Indication: Gaucher^s disease
     Dosage: 30 INTERNATIONAL UNIT/KILOGRAM, Q2WEEKS
     Dates: start: 20211129
  2. BISOPROLOL FUMARATE [Concomitant]
     Active Substance: BISOPROLOL FUMARATE
     Indication: Heart valve replacement
     Dosage: 5 MILLIGRAM, QD
     Dates: start: 20211124, end: 20211220
  3. BISOPROLOL FUMARATE [Concomitant]
     Active Substance: BISOPROLOL FUMARATE
     Dosage: 5 MILLIGRAM, QD
     Dates: start: 20211220
  4. OMEPRAZOLE [Concomitant]
     Active Substance: OMEPRAZOLE
     Indication: Heart valve replacement
     Dosage: 40 MILLIGRAM, QD
     Dates: start: 20211124
  5. RAMIPRIL [Concomitant]
     Active Substance: RAMIPRIL
     Indication: Heart valve replacement
     Dosage: 1.25 MILLIGRAM, QD
     Dates: start: 20211124, end: 20211220
  6. RAMIPRIL [Concomitant]
     Active Substance: RAMIPRIL
     Dosage: 2.5 MILLIGRAM, QD
     Dates: start: 20211220
  7. WARFARIN SODIUM [Concomitant]
     Active Substance: WARFARIN SODIUM
     Indication: Heart valve replacement
     Dosage: 5 MILLIGRAM, QD
     Dates: start: 20211124, end: 20211220
  8. WARFARIN SODIUM [Concomitant]
     Active Substance: WARFARIN SODIUM
     Dosage: 2.5 MILLIGRAM, QD
     Dates: start: 20211220
  9. FUROSEMIDE [Concomitant]
     Active Substance: FUROSEMIDE
     Indication: Heart valve replacement
     Dosage: 20 MILLIGRAM, QD
     Dates: start: 20211124, end: 20211219
  10. FUROSEMIDE [Concomitant]
     Active Substance: FUROSEMIDE
     Dosage: 40 MILLIGRAM, QD
     Dates: start: 20211220
  11. COLCHICINE [Concomitant]
     Active Substance: COLCHICINE
     Indication: Heart valve replacement
     Dosage: 0.5 MILLIGRAM, BID
     Dates: start: 20211220, end: 20211227
  12. NAPROXEN [Concomitant]
     Active Substance: NAPROXEN
     Indication: Heart valve replacement
     Dosage: 500 MILLIGRAM, BID
     Dates: start: 20211220, end: 20211227
  13. PREDNISONE [Concomitant]
     Active Substance: PREDNISONE
     Indication: Pericardial effusion
     Dosage: 35 MILLIGRAM, QD
     Dates: start: 20220104, end: 20220118
  14. VENOFER [Concomitant]
     Active Substance: IRON SUCROSE
     Indication: Iron deficiency anaemia
     Dosage: 200 MILLIGRAM, Q2WEEKS
     Dates: start: 20220621

REACTIONS (1)
  - Hydrocephalus [Not Recovered/Not Resolved]

NARRATIVE: CASE EVENT DATE: 20241220
